FAERS Safety Report 5740284-0 (Version None)
Quarter: 2008Q2

REPORT INFORMATION
  Report Type: 
  Country: None (occurrence: None)
  Receive Date: 20080513
  Receipt Date: 20080502
  Transmission Date: 20081010
  Serious: Yes (Hospitalization)
  Sender: FDA-Public Use
  Company Number: 2008-02806

PATIENT
  Age: 30 Year
  Sex: Male

DRUGS (2)
  1. COLCHICUM JTL LIQ [Suspect]
     Indication: FAMILIAL MEDITERRANEAN FEVER
     Dosage: 1.5 MG, DAILY
  2. SIMVASTATIN [Suspect]
     Indication: HYPERLIPIDAEMIA
     Dosage: 20 MG, DAILY

REACTIONS (3)
  - DRUG INTERACTION [None]
  - MYOPATHY [None]
  - POLYNEUROPATHY [None]
